FAERS Safety Report 4731364-7 (Version None)
Quarter: 2005Q3

REPORT INFORMATION
  Report Type: 
  Country: None (occurrence: None)
  Receive Date: 20050801
  Receipt Date: 20050801
  Transmission Date: 20060218
  Serious: Yes (Life-Threatening)
  Sender: FDA-Public Use
  Company Number: None

PATIENT
  Age: 57 Year
  Sex: Male
  Weight: 73 kg

DRUGS (1)
  1. ZOSYN [Suspect]
     Indication: PNEUMONIA
     Dosage: 3.375MG   ONE TIME   INTRAVENOUS
     Route: 042
     Dates: start: 20050116, end: 20050116

REACTIONS (6)
  - BLOOD PRESSURE IMMEASURABLE [None]
  - DYSPNOEA [None]
  - LETHARGY [None]
  - RASH [None]
  - RESPIRATORY RATE INCREASED [None]
  - TACHYCARDIA [None]
